FAERS Safety Report 6376820-3 (Version None)
Quarter: 2009Q3

REPORT INFORMATION
  Report Type: 
  Country: None (occurrence: None)
  Receive Date: 20090921
  Receipt Date: 20090916
  Transmission Date: 20100115
  Serious: Yes (Death)
  Sender: FDA-Public Use
  Company Number: GXKR2009DE10382

PATIENT
  Age: 59 Year
  Sex: Female

DRUGS (1)
  1. DOXEPIN HCL [Suspect]
     Dosage: 2000 MG, ONCE/SINGLE

REACTIONS (2)
  - ASPIRATION [None]
  - DRUG TOXICITY [None]
